FAERS Safety Report 8105813-0 (Version None)
Quarter: 2012Q1

REPORT INFORMATION
  Report Type: 
  Country: None (occurrence: None)
  Receive Date: 20120201
  Receipt Date: 20111222
  Transmission Date: 20120608
  Serious: Yes (Hospitalization)
  Sender: FDA-Public Use
  Company Number: PHHY2011JP110771

PATIENT
  Sex: Male
  Weight: 60.8 kg

DRUGS (2)
  1. NORVASC [Concomitant]
     Indication: HYPERTENSION
     Dosage: 2.5 MG, UNK
     Route: 048
  2. PARLODEL [Suspect]
     Indication: ACROMEGALY
     Dosage: 2.5 MG, BID
     Route: 048

REACTIONS (12)
  - AORTIC VALVE STENOSIS [None]
  - GLOMERULAR FILTRATION RATE DECREASED [None]
  - DYSPNOEA [None]
  - RED BLOOD CELL COUNT DECREASED [None]
  - C-REACTIVE PROTEIN INCREASED [None]
  - BLOOD CHOLESTEROL DECREASED [None]
  - WHITE BLOOD CELL COUNT INCREASED [None]
  - HAEMATOCRIT DECREASED [None]
  - LOW DENSITY LIPOPROTEIN DECREASED [None]
  - BLOOD CREATINE PHOSPHOKINASE DECREASED [None]
  - ALANINE AMINOTRANSFERASE INCREASED [None]
  - HAEMOGLOBIN DECREASED [None]
